FAERS Safety Report 11218664 (Version 6)
Quarter: 2016Q2

REPORT INFORMATION
  Report Type: Report from Study
  Country: BR (occurrence: BR)
  Receive Date: 20150625
  Receipt Date: 20160527
  Transmission Date: 20160815
  Serious: Yes (Death, Hospitalization, Other)
  Sender: FDA-Public Use
  Company Number: PHHY2015BR075246

PATIENT
  Sex: Male
  Weight: 69 kg

DRUGS (2)
  1. EXJADE [Suspect]
     Active Substance: DEFERASIROX
     Indication: SICKLE CELL ANAEMIA
     Dosage: 30 MG/KG, QD (4 DF OF 500 MG)
     Route: 048
     Dates: start: 2014
  2. EXJADE [Suspect]
     Active Substance: DEFERASIROX
     Indication: MYELODYSPLASTIC SYNDROME
     Dosage: 2 DF (20MG/KG), QD (IN THE MORNING, IN FASTING)
     Route: 048

REACTIONS (35)
  - Asthenia [Unknown]
  - Influenza [Unknown]
  - Dyspnoea [Unknown]
  - Spinal pain [Not Recovered/Not Resolved]
  - Arthralgia [Unknown]
  - Osteoarthritis [Unknown]
  - Apathy [Unknown]
  - Malaise [Unknown]
  - Aggression [Unknown]
  - Nervousness [Unknown]
  - Feeding disorder [Unknown]
  - Nausea [Unknown]
  - Platelet count decreased [Unknown]
  - Wrong technique in product usage process [Unknown]
  - Pneumonia [Fatal]
  - Nodule [Unknown]
  - Cough [Recovering/Resolving]
  - Constipation [Unknown]
  - Sneezing [Unknown]
  - Gait disturbance [Unknown]
  - Sickle cell anaemia with crisis [Unknown]
  - Aplasia pure red cell [Unknown]
  - Muscle spasms [Unknown]
  - Pain in extremity [Unknown]
  - Tendon pain [Unknown]
  - Stress [Unknown]
  - Depression [Unknown]
  - Cachexia [Not Recovered/Not Resolved]
  - Erectile dysfunction [Unknown]
  - Gastrooesophageal reflux disease [Unknown]
  - Weight decreased [Not Recovered/Not Resolved]
  - Immunodeficiency [Unknown]
  - Faeces hard [Unknown]
  - Vomiting [Unknown]
  - Anaemia [Unknown]
